FAERS Safety Report 17100009 (Version 1)
Quarter: 2019Q4

REPORT INFORMATION
  Report Type: Spontaneous
  Country: US (occurrence: US)
  Receive Date: 20191202
  Receipt Date: 20191202
  Transmission Date: 20200122
  Serious: No
  Sender: FDA-Public Use
  Company Number: US-BAYER-2019-208383

PATIENT
  Age: 23 Year
  Sex: Female

DRUGS (2)
  1. MIRENA [Suspect]
     Active Substance: LEVONORGESTREL
     Indication: CONTRACEPTION
  2. MIRENA [Suspect]
     Active Substance: LEVONORGESTREL
     Indication: CONTRACEPTION
     Dosage: 20 MCG/24HR, CONT
     Route: 015
     Dates: start: 20190218

REACTIONS (6)
  - Rash macular [Not Recovered/Not Resolved]
  - Pain [Not Recovered/Not Resolved]
  - Rash [None]
  - Exfoliative rash [Not Recovered/Not Resolved]
  - Pruritus [Not Recovered/Not Resolved]
  - Device use issue [None]

NARRATIVE: CASE EVENT DATE: 201902
